FAERS Safety Report 9498242 (Version 1)
Quarter: 2013Q3

REPORT INFORMATION
  Report Type: Spontaneous
  Country: US (occurrence: None)
  Receive Date: 20130903
  Receipt Date: 20130903
  Transmission Date: 20140515
  Serious: Yes (Other)
  Sender: FDA-Public Use
  Company Number: None

PATIENT
  Age: 1 Day
  Sex: Male
  Weight: 1.2 kg

DRUGS (1)
  1. CAFFEINE CITRATE [Suspect]
     Indication: APNOEA
     Dosage: 25 MG ( 1.25 ML) QD INTRAVENOUS
     Route: 042
     Dates: start: 20130824, end: 20130925

REACTIONS (2)
  - Medication error [None]
  - Product packaging issue [None]
